FAERS Safety Report 9246488 (Version 1)
Quarter: 2013Q2

REPORT INFORMATION
  Report Type: Other
  Country: IT (occurrence: IT)
  Receive Date: 20130422
  Receipt Date: 20130422
  Transmission Date: 20140414
  Serious: Yes (Life-Threatening)
  Sender: FDA-Public Use
  Company Number: IT-ACTAVIS-2013-06831

PATIENT
  Age: 0 Year
  Sex: Male

DRUGS (1)
  1. PARACETAMOL (UNKNOWN) [Suspect]
     Indication: PYREXIA
     Dosage: 175 MG/KG, DAILY
     Route: 054
     Dates: start: 20130330, end: 20130331

REACTIONS (2)
  - Hepatic failure [Recovering/Resolving]
  - Toxicity to various agents [Recovering/Resolving]
